FAERS Safety Report 8043461 (Version 4)
Quarter: 2015Q3

REPORT INFORMATION
  Report Type: Report from Study
  Country: AU (occurrence: AU)
  Receive Date: 20110719
  Receipt Date: 20150916
  Transmission Date: 20151125
  Serious: Yes (Death, Hospitalization, Other)
  Sender: FDA-Public Use
  Company Number: PHHY2011AU54016

PATIENT
  Age: 65 Year
  Sex: Male

DRUGS (4)
  1. VALPROATE SODIUM. [Concomitant]
     Active Substance: VALPROATE SODIUM
     Indication: SEIZURE
     Dosage: 700 MG, BID
     Route: 048
  2. CLOZARIL [Suspect]
     Active Substance: CLOZAPINE
     Indication: PRODUCT USED FOR UNKNOWN INDICATION
     Dosage: 250 MG, UNK
     Route: 065
     Dates: start: 20000706
  3. BENZTROPINE [Concomitant]
     Active Substance: BENZTROPINE
     Indication: MENTAL DISORDER
     Dosage: 1 MG, BID
     Route: 048
  4. PHENYTOIN. [Concomitant]
     Active Substance: PHENYTOIN
     Indication: EPILEPSY
     Dosage: 300 MG, QD
     Route: 042
     Dates: start: 20110616, end: 20110618

REACTIONS (14)
  - Platelet count decreased [Unknown]
  - Pneumonia [Unknown]
  - Hyponatraemia [Fatal]
  - Cardiac arrest [Fatal]
  - Hypothermia [Unknown]
  - Blood pressure diastolic decreased [Unknown]
  - Haemoglobin decreased [Unknown]
  - Red blood cell count decreased [Unknown]
  - Dehydration [Unknown]
  - Lymphocyte count decreased [Unknown]
  - Ventricular fibrillation [Fatal]
  - Hyporesponsive to stimuli [Fatal]
  - Urinary tract infection [Unknown]
  - Bradycardia [Unknown]

NARRATIVE: CASE EVENT DATE: 20110615
